FAERS Safety Report 5643868-3 (Version None)
Quarter: 2008Q1

REPORT INFORMATION
  Report Type: 
  Country: None (occurrence: None)
  Receive Date: 20080226
  Receipt Date: 20080220
  Transmission Date: 20080703
  Serious: Yes (Other)
  Sender: FDA-Public Use
  Company Number: 024114

PATIENT
  Age: 35 Year
  Sex: Female
  Weight: 81.6 kg

DRUGS (2)
  1. METRONIDAZOLE [Suspect]
     Indication: VAGINITIS BACTERIAL
     Dosage: 500 MG, BID, ORAL
     Route: 048
     Dates: start: 20080205, end: 20080207
  2. ORTHO TRI-CYCLEN [Concomitant]

REACTIONS (1)
  - ANAPHYLACTIC REACTION [None]
